FAERS Safety Report 19894685 (Version 1)
Quarter: 2021Q3

REPORT INFORMATION
  Report Type: Spontaneous
  Country: US (occurrence: US)
  Receive Date: 20210929
  Receipt Date: 20210929
  Transmission Date: 20211014
  Serious: Yes (Hospitalization)
  Sender: FDA-Public Use
  Company Number: None

PATIENT
  Age: 66 Year
  Sex: Male
  Weight: 61 kg

DRUGS (1)
  1. WARFARIN (WARFAIN NA (EXELAN) 2.5MG TAB) [Suspect]
     Active Substance: WARFARIN SODIUM
     Indication: ATRIAL FIBRILLATION
     Dates: start: 20200108

REACTIONS (3)
  - Upper gastrointestinal haemorrhage [None]
  - Gastrointestinal haemorrhage [None]
  - Peptic ulcer [None]

NARRATIVE: CASE EVENT DATE: 20210501
